FAERS Safety Report 4440963-1 (Version None)
Quarter: 2004Q3

REPORT INFORMATION
  Report Type: 
  Country: None (occurrence: None)
  Receive Date: 20040728
  Receipt Date: 20040408
  Transmission Date: 20050211
  Serious: No
  Sender: FDA-Public Use
  Company Number: USA040464453

PATIENT
  Age: 12 Year
  Sex: Female

DRUGS (2)
  1. STRATTERA [Suspect]
     Indication: ATTENTION DEFICIT/HYPERACTIVITY DISORDER
     Dosage: 10 MG IN THE MORNING
     Dates: start: 20040329
  2. ALBUTEROL [Concomitant]

REACTIONS (3)
  - ABDOMINAL PAIN [None]
  - PYREXIA [None]
  - SLEEP DISORDER [None]
